FAERS Safety Report 7961701-1 (Version None)
Quarter: 2011Q4

REPORT INFORMATION
  Report Type: 
  Country: None (occurrence: None)
  Receive Date: 20111207
  Receipt Date: 20111129
  Transmission Date: 20120403
  Serious: Yes (Other)
  Sender: FDA-Public Use
  Company Number: PHHY2011PT104666

PATIENT
  Age: 17 Year

DRUGS (1)
  1. ALBUTEROL SULFATE AUTOHALER [Suspect]

REACTIONS (7)
  - OVERDOSE [None]
  - HYPOKALAEMIA [None]
  - LACTIC ACIDOSIS [None]
  - SINUS TACHYCARDIA [None]
  - ANION GAP INCREASED [None]
  - ASTHMA [None]
  - HYPERLACTACIDAEMIA [None]
